FAERS Safety Report 14838857 (Version 4)
Quarter: 2018Q2

REPORT INFORMATION
  Report Type: Spontaneous
  Country: JP (occurrence: JP)
  Receive Date: 20180502
  Receipt Date: 20180516
  Transmission Date: 20180711
  Serious: Yes (Other)
  Sender: FDA-Public Use
  Company Number: PHHY2018JP073880

PATIENT
  Age: 81 Year
  Sex: Female

DRUGS (5)
  1. RITUXIMAB. [Suspect]
     Active Substance: RITUXIMAB
     Indication: FACTOR VIII DEFICIENCY
     Dosage: 375 MG/M2, QW
     Route: 065
  2. PREDNISOLONE. [Suspect]
     Active Substance: PREDNISOLONE
     Indication: FACTOR VIII DEFICIENCY
     Dosage: 0.5 MG/KG, UNK
     Route: 065
  3. CYCLOPHOSPHAMIDE. [Suspect]
     Active Substance: CYCLOPHOSPHAMIDE
     Indication: FACTOR VIII DEFICIENCY
     Dosage: 50 MG, UNK
     Route: 065
  4. CYCLOPHOSPHAMIDE. [Suspect]
     Active Substance: CYCLOPHOSPHAMIDE
     Dosage: 500 MG, UNK
     Route: 042
  5. VINCRISTINE [Suspect]
     Active Substance: VINCRISTINE
     Indication: FACTOR VIII DEFICIENCY
     Dosage: 1 MG, UNK
     Route: 042

REACTIONS (3)
  - Pneumonia [Recovered/Resolved]
  - Product use in unapproved indication [Unknown]
  - Therapy non-responder [Unknown]
